FAERS Safety Report 6770111-4 (Version None)
Quarter: 2010Q2

REPORT INFORMATION
  Report Type: 
  Country: None (occurrence: None)
  Receive Date: 20100615
  Receipt Date: 20100608
  Transmission Date: 20101027
  Serious: Yes (Death)
  Sender: FDA-Public Use
  Company Number: US-CELGENEUS-163-20785-10060789

PATIENT
  Age: 54 Year
  Sex: Male

DRUGS (12)
  1. THALOMID [Suspect]
     Indication: MULTIPLE MYELOMA
     Route: 048
  2. DEXAMETHASONE [Suspect]
     Indication: MULTIPLE MYELOMA
  3. VINCRISTINE [Suspect]
     Indication: MULTIPLE MYELOMA
     Route: 065
  4. ADRIAMYCIN PFS [Suspect]
     Indication: MULTIPLE MYELOMA
     Route: 065
  5. CYCLOPHOSPHAMIDE [Suspect]
     Indication: MULTIPLE MYELOMA
     Route: 065
  6. ETOPOSIDE [Suspect]
     Indication: MULTIPLE MYELOMA
     Route: 065
  7. CISPLATIN [Suspect]
     Indication: MULTIPLE MYELOMA
     Route: 065
  8. BORTEZOMIB [Suspect]
     Indication: MULTIPLE MYELOMA
     Route: 065
  9. ANTI-THYMOCYTE GLOBULIN NOS [Concomitant]
     Indication: DRUG USE FOR UNKNOWN INDICATION
     Route: 065
  10. FLUDARABINE [Concomitant]
     Indication: DRUG USE FOR UNKNOWN INDICATION
     Route: 065
  11. MYCOFENYLATE MOFETIL [Concomitant]
     Indication: PROPHYLAXIS
     Route: 065
  12. CYCLOSPORINE [Concomitant]
     Indication: PROPHYLAXIS
     Route: 065

REACTIONS (1)
  - ACUTE RESPIRATORY DISTRESS SYNDROME [None]
